FAERS Safety Report 4630671-6 (Version None)
Quarter: 2005Q2

REPORT INFORMATION
  Report Type: 
  Country: None (occurrence: None)
  Receive Date: 20050408
  Receipt Date: 20050330
  Transmission Date: 20051028
  Serious: Yes (Disabling, Other)
  Sender: FDA-Public Use
  Company Number: GB-JNJFOC-20050106697

PATIENT
  Age: 12 Year
  Sex: Male
  Weight: 36.5 kg

DRUGS (5)
  1. RISPERDAL [Suspect]
     Indication: AGGRESSION
     Route: 049
  2. RISPERDAL [Suspect]
     Route: 049
  3. RISPERDAL [Suspect]
     Indication: ABNORMAL BEHAVIOUR
     Route: 049
  4. STRATTERA [Suspect]
     Indication: ATTENTION DEFICIT/HYPERACTIVITY DISORDER
     Route: 049
  5. STRATTERA [Suspect]
     Indication: TOURETTE'S DISORDER
     Route: 049

REACTIONS (5)
  - BUNDLE BRANCH BLOCK RIGHT [None]
  - DIZZINESS [None]
  - MALAISE [None]
  - ORTHOSTATIC HYPOTENSION [None]
  - PALPITATIONS [None]
